FAERS Safety Report 10380740 (Version 1)
Quarter: 2014Q3

REPORT INFORMATION
  Report Type: Spontaneous
  Country: FR (occurrence: None)
  Receive Date: 20140808
  Receipt Date: 20140808
  Transmission Date: 20150326
  Serious: Yes (Other)
  Sender: FDA-Public Use
  Company Number: FK201403118

PATIENT
  Age: 65 Year
  Sex: Female

DRUGS (3)
  1. HERCEPTIN [Suspect]
     Active Substance: TRASTUZUMAB
     Indication: BREAST CANCER
     Dates: start: 20140206
  2. PACLITAXEL 6MG/ML CONCENTRATE FOR SOLUTION FOR INFUSION (PACLITAXEL) (PACLITAXEL) [Suspect]
     Active Substance: PACLITAXEL
     Indication: BREAST CANCER
     Dates: start: 20140116
  3. TAXOTERE [Suspect]
     Active Substance: DOCETAXEL
     Dates: start: 20131226

REACTIONS (6)
  - Asthenia [None]
  - Mucosal inflammation [None]
  - Condition aggravated [None]
  - Neuropathy peripheral [None]
  - Colitis [None]
  - Muscle spasms [None]

NARRATIVE: CASE EVENT DATE: 201402
